FAERS Safety Report 10861005 (Version 1)
Quarter: 2015Q1

REPORT INFORMATION
  Report Type: Spontaneous
  Country: US (occurrence: None)
  Receive Date: 20150218
  Receipt Date: 20150218
  Transmission Date: 20150721
  Serious: No
  Sender: FDA-Public Use
  Company Number: None

PATIENT
  Age: 5 Year
  Sex: Male

DRUGS (2)
  1. AMOXICILLIN FOR ORAL SUSPENSION 250 MG PER 5 ML TEVA [Suspect]
     Active Substance: AMOXICILLIN
     Route: 048
  2. PENICILLIN V POTASSIUM FOR ORAL 250 MG (400,000 U) PER 5 ML TEVA [Suspect]
     Active Substance: PENICILLIN V POTASSIUM

REACTIONS (3)
  - Product label issue [None]
  - Circumstance or information capable of leading to medication error [None]
  - Intercepted drug dispensing error [None]

NARRATIVE: CASE EVENT DATE: 20150213
